FAERS Safety Report 5651097-2 (Version None)
Quarter: 2008Q1

REPORT INFORMATION
  Report Type: 
  Country: None (occurrence: None)
  Receive Date: 20080305
  Receipt Date: 20080222
  Transmission Date: 20080703
  Serious: Yes (Death)
  Sender: FDA-Public Use
  Company Number: US-BRISTOL-MYERS SQUIBB COMPANY-14097208

PATIENT
  Age: 58 Year
  Sex: Female

DRUGS (3)
  1. IXEMPRA [Suspect]
  2. NARCOTIC ANALGESICS [Concomitant]
  3. ANTIDEPRESSANT [Concomitant]

REACTIONS (2)
  - CEREBROVASCULAR ACCIDENT [None]
  - NERVOUS SYSTEM DISORDER [None]
